FAERS Safety Report 6930928-X (Version None)
Quarter: 2010Q3

REPORT INFORMATION
  Report Type: 
  Country: None (occurrence: None)
  Receive Date: 20100818
  Receipt Date: 20100810
  Transmission Date: 20110219
  Serious: Yes (Other)
  Sender: FDA-Public Use
  Company Number: US-RB-010431-10

PATIENT
  Age: 23 Year
  Sex: Male

DRUGS (2)
  1. SUBOXONE [Suspect]
     Indication: DRUG DEPENDENCE
     Route: 060
     Dates: start: 20090101
  2. ALCOHOL [Suspect]

REACTIONS (6)
  - CONVULSION [None]
  - DEPRESSION [None]
  - DRUG INTERACTION [None]
  - DRUG WITHDRAWAL SYNDROME [None]
  - EXCORIATION [None]
  - HEAD INJURY [None]
